FAERS Safety Report 23170420 (Version 1)
Quarter: 2023Q4

REPORT INFORMATION
  Report Type: Spontaneous
  Country: KR (occurrence: KR)
  Receive Date: 20231110
  Receipt Date: 20231110
  Transmission Date: 20240110
  Serious: Yes (Other)
  Sender: FDA-Public Use
  Company Number: KR-MYLANLABS-2023M1119772

PATIENT
  Age: 89 Year
  Sex: Female

DRUGS (3)
  1. LIPITOR [Suspect]
     Active Substance: ATORVASTATIN CALCIUM
     Indication: Chest pain
     Dosage: 1 DOSAGE FORM, QD
     Route: 065
     Dates: start: 20200409
  2. FERROUS SULFATE [Suspect]
     Active Substance: FERROUS SULFATE
     Indication: Chest pain
     Dosage: 1 DOSAGE FORM, BID
     Route: 065
     Dates: start: 20200409
  3. SPIRONOLACTONE [Suspect]
     Active Substance: SPIRONOLACTONE
     Indication: Chest pain
     Dosage: 0.5 DOSAGE FORM, QD
     Route: 065
     Dates: start: 20200409

REACTIONS (3)
  - Melaena [Unknown]
  - Toothache [Unknown]
  - Off label use [Unknown]

NARRATIVE: CASE EVENT DATE: 20200409
